FAERS Safety Report 25626869 (Version 1)
Quarter: 2025Q3

REPORT INFORMATION
  Report Type: Spontaneous
  Country: GB (occurrence: GB)
  Receive Date: 20250731
  Receipt Date: 20250731
  Transmission Date: 20251021
  Serious: Yes (Other)
  Sender: MYLAN
  Company Number: GB-MYLANLABS-2025M1055108

PATIENT
  Age: 63 Year
  Sex: Male

DRUGS (9)
  1. CLOZAPINE [Suspect]
     Active Substance: CLOZAPINE
     Indication: Schizophrenia
     Dosage: UNK, BID (50 MILLIGRAM IN THE MORNING AND 75 MILLIGRAM IN THE NIGHT)
     Dates: end: 20250625
  2. AMISULPRIDE [Concomitant]
     Active Substance: AMISULPRIDE
     Indication: Schizophrenia
     Dosage: 50 MILLIGRAM, AM (MANE)
     Dates: start: 2020, end: 20250625
  3. DIAZEPAM [Concomitant]
     Active Substance: DIAZEPAM
     Indication: Anxiety
     Dosage: UNK, BID (5 MG IN THE MORNING AND 2 MG IN THE NIGHT)
     Dates: start: 2020
  4. DIAZEPAM [Concomitant]
     Active Substance: DIAZEPAM
     Indication: Sleep disorder
  5. FLUOXETINE [Concomitant]
     Active Substance: FLUOXETINE HYDROCHLORIDE
     Indication: Depression
     Dosage: 40 MILLIGRAM, AM (MORNING)
     Dates: end: 20250625
  6. FERROUS FUMARATE [Concomitant]
     Active Substance: FERROUS FUMARATE
     Indication: Nephropathy
     Dosage: 210 MILLIGRAM, AM (MORNING)
  7. ALFACALCIDOL [Concomitant]
     Active Substance: ALFACALCIDOL
     Indication: Nephropathy
     Dosage: 250 NANOGRAM, AM (MORNING)
  8. SODIUM BICARBONATE [Concomitant]
     Active Substance: SODIUM BICARBONATE
     Indication: Nephropathy
     Dosage: 1 GRAM, TID (THREE TIMES A DAY)
  9. POLYETHYLENE GLYCOL 3350\POTASSIUM CHLORIDE\SODIUM BICARBONATE\SODIUM [Concomitant]
     Active Substance: POLYETHYLENE GLYCOL 3350\POTASSIUM CHLORIDE\SODIUM BICARBONATE\SODIUM CHLORIDE
     Indication: Constipation

REACTIONS (4)
  - Renal failure [Unknown]
  - Palliative care [Not Recovered/Not Resolved]
  - Asthenia [Not Recovered/Not Resolved]
  - Hypophagia [Recovering/Resolving]
